FAERS Safety Report 10163141 (Version 1)
Quarter: 2014Q2

REPORT INFORMATION
  Report Type: Spontaneous
  Country: CO (occurrence: CO)
  Receive Date: 20140509
  Receipt Date: 20140509
  Transmission Date: 20141212
  Serious: Yes (Other)
  Sender: FDA-Public Use
  Company Number: CO-PFIZER INC-2014128104

PATIENT
  Age: 7 Year
  Sex: Female

DRUGS (2)
  1. GENOTROPIN [Suspect]
     Indication: BODY HEIGHT BELOW NORMAL
     Dosage: 0.8 MG, 1X/DAY
     Route: 058
     Dates: start: 2012, end: 201401
  2. GENOTROPIN [Suspect]
     Indication: UNDERWEIGHT

REACTIONS (2)
  - Choking [Recovered/Resolved]
  - Weight decreased [Recovered/Resolved]
